FAERS Safety Report 8173614-3 (Version None)
Quarter: 2012Q1

REPORT INFORMATION
  Report Type: 
  Country: None (occurrence: None)
  Receive Date: 20120227
  Receipt Date: 20120216
  Transmission Date: 20120608
  Serious: Yes (Hospitalization, Other)
  Sender: FDA-Public Use
  Company Number: ADR-2005-2233

PATIENT

DRUGS (2)
  1. LIORESAL [Suspect]
     Indication: MULTIPLE SCLEROSIS
     Dosage: MCG, DAILY, INTRATHECAL
     Route: 037
  2. LIORESAL [Suspect]
     Indication: MUSCLE SPASTICITY
     Dosage: MCG, DAILY, INTRATHECAL
     Route: 037

REACTIONS (5)
  - MENINGITIS CHEMICAL [None]
  - MITRAL VALVE DISEASE [None]
  - PULMONARY THROMBOSIS [None]
  - MUSCLE SPASMS [None]
  - THROMBOSIS [None]
